FAERS Safety Report 5596918-7 (Version None)
Quarter: 2007Q4

REPORT INFORMATION
  Report Type: 
  Country: None (occurrence: None)
  Receive Date: 20071220
  Receipt Date: 20071009
  Transmission Date: 20080405
  Serious: Yes (Hospitalization)
  Sender: FDA-Public Use
  Company Number: A03200702186

PATIENT
  Age: 66 Year
  Sex: Female
  Weight: 67.1324 kg

DRUGS (5)
  1. AMBIEN CR [Suspect]
     Indication: INSOMNIA
     Dosage: TOOK 2 TABLETS - 1 PER NIGHT - ORAL
     Route: 048
     Dates: start: 20061216, end: 20061217
  2. LANSOPRAZOLE [Concomitant]
  3. ALENDRONATE SODIUM [Concomitant]
  4. NADOLOL [Concomitant]
  5. LOVASTATIN [Concomitant]

REACTIONS (1)
  - AMNESIA [None]
